FAERS Safety Report 7984103-0 (Version None)
Quarter: 2011Q4

REPORT INFORMATION
  Report Type: 
  Country: None (occurrence: None)
  Receive Date: 20111216
  Receipt Date: 20111213
  Transmission Date: 20120403
  Serious: Yes (Other)
  Sender: FDA-Public Use
  Company Number: GB-PFIZER INC-2011303061

PATIENT
  Age: 25 Year
  Sex: Female

DRUGS (5)
  1. LEVETIRACETAM [Concomitant]
     Dosage: 1.5 G, 2X/DAY
  2. PREGABALIN [Suspect]
     Dosage: 150 MG, 2X/DAY
  3. MIDAZOLAM [Concomitant]
     Dosage: 5-10 MG ONCE DAILY AS NEEDED
     Route: 002
  4. TEGRETOL [Concomitant]
     Dosage: 700 MG, 2X/DAY
  5. VALPROIC ACID [Concomitant]
     Dosage: 700 MG MANE AND 1000 MG EVENING

REACTIONS (1)
  - GAZE PALSY [None]
